FAERS Safety Report 4366035-2 (Version None)
Quarter: 2004Q2

REPORT INFORMATION
  Report Type: 
  Country: None (occurrence: None)
  Receive Date: 20040524
  Receipt Date: 20040510
  Transmission Date: 20050107
  Serious: Yes (Disabling)
  Sender: FDA-Public Use
  Company Number: 2004UW09493

PATIENT
  Age: 57 Year
  Sex: Male
  Weight: 87.0906 kg

DRUGS (5)
  1. CRESTOR [Suspect]
     Indication: DYSLIPIDAEMIA
     Dosage: 10 MG DAILY PO
     Route: 048
     Dates: start: 20040324, end: 20040503
  2. ALTACE [Concomitant]
  3. SENOKOT [Concomitant]
  4. TAZAC [Concomitant]
  5. ASPIRIN [Concomitant]

REACTIONS (1)
  - CATARACT [None]
